FAERS Safety Report 9377582 (Version 1)
Quarter: 2013Q2

REPORT INFORMATION
  Report Type: Spontaneous
  Country: GB (occurrence: None)
  Receive Date: 20130625
  Receipt Date: 20130625
  Transmission Date: 20140414
  Serious: Yes (Disabling, Other)
  Sender: FDA-Public Use
  Company Number: AUR-APL-2013-05049

PATIENT
  Age: 34 Year
  Sex: Female
  Weight: 73 kg

DRUGS (5)
  1. SERTRALINE [Suspect]
     Indication: ANXIETY
     Route: 048
  2. SERTRALINE [Suspect]
     Indication: DIZZINESS
     Route: 048
  3. SERTRALINE [Suspect]
     Indication: DYSPHEMIA
     Route: 048
  4. SERTRALINE [Suspect]
     Indication: GAIT DISTURBANCE
     Route: 048
  5. TRIMETHOPRIM (TRIMETHOPRIM) [Concomitant]

REACTIONS (28)
  - Staring [None]
  - Somnolence [None]
  - Insomnia [None]
  - Yawning [None]
  - Panic attack [None]
  - Disturbance in attention [None]
  - Thinking abnormal [None]
  - Nausea [None]
  - Diarrhoea [None]
  - Dysuria [None]
  - Bladder discomfort [None]
  - Micturition urgency [None]
  - Anorgasmia [None]
  - Tremor [None]
  - Tremor [None]
  - Speech disorder [None]
  - Dysphemia [None]
  - Dizziness [None]
  - Stress [None]
  - Fear [None]
  - Self-injurious ideation [None]
  - Logorrhoea [None]
  - Decreased eye contact [None]
  - Panic disorder [None]
  - Conversion disorder [None]
  - Dizziness [None]
  - Condition aggravated [None]
  - Drug ineffective [None]
